FAERS Safety Report 8415327-6 (Version None)
Quarter: 2012Q2

REPORT INFORMATION
  Report Type: 
  Country: None (occurrence: None)
  Receive Date: 20120606
  Receipt Date: 20120530
  Transmission Date: 20120825
  Serious: Yes (Disabling, Other)
  Sender: FDA-Public Use
  Company Number: PHHY2012BR047709

PATIENT
  Sex: Male

DRUGS (4)
  1. VENTILIFI [Concomitant]
     Indication: DEPRESSION
  2. EXELON [Suspect]
     Indication: DEMENTIA ALZHEIMER'S TYPE
     Dosage: 4.6 MG/ 24HRS
     Route: 062
     Dates: start: 20120502
  3. DIHYDROERGOCRISTINE [Concomitant]
     Indication: BLOOD PRESSURE
  4. AMITRIL [Concomitant]

REACTIONS (8)
  - INCOHERENT [None]
  - SWELLING FACE [None]
  - FEELING ABNORMAL [None]
  - CRYING [None]
  - SEBORRHOEA [None]
  - ERYTHEMA [None]
  - ABASIA [None]
  - DELIRIUM [None]
